FAERS Safety Report 17448175 (Version 1)
Quarter: 2020Q1

REPORT INFORMATION
  Report Type: Spontaneous
  Country: DE (occurrence: DE)
  Receive Date: 20200222
  Receipt Date: 20200222
  Transmission Date: 20200409
  Serious: Yes (Hospitalization)
  Sender: FDA-Public Use
  Company Number: NVSC2020DE044154

PATIENT
  Age: 59 Year
  Sex: Male

DRUGS (17)
  1. SERTRALINE [Suspect]
     Active Substance: SERTRALINE HYDROCHLORIDE
     Dosage: 150 MG, UNKNOWN
     Route: 065
     Dates: start: 20190416, end: 20190426
  2. RISPERIDONE. [Suspect]
     Active Substance: RISPERIDONE
     Indication: MAJOR DEPRESSION
     Dosage: 1 MG, UNKNOWN
     Route: 065
     Dates: start: 20190318, end: 20190416
  3. RISPERIDONE. [Suspect]
     Active Substance: RISPERIDONE
     Dosage: 2 MG, UNKNOWN
     Route: 065
     Dates: start: 20190417, end: 20190423
  4. SERTRALINE [Suspect]
     Active Substance: SERTRALINE HYDROCHLORIDE
     Indication: MAJOR DEPRESSION
     Dosage: 100 MG, UNKNOWN
     Route: 065
     Dates: start: 20190403, end: 20190415
  5. RISPERIDONE. [Suspect]
     Active Substance: RISPERIDONE
     Dosage: 1 MG, UNKNOWN
     Route: 065
     Dates: start: 20190424, end: 20190426
  6. TRAZODONE [Suspect]
     Active Substance: TRAZODONE HYDROCHLORIDE
     Indication: MAJOR DEPRESSION
     Dosage: UNK (25 -100MG)
     Route: 065
     Dates: start: 20190321, end: 20190401
  7. TRAZODONE [Suspect]
     Active Substance: TRAZODONE HYDROCHLORIDE
     Dosage: 125 MG, UNKNOWN
     Route: 065
     Dates: start: 20190415, end: 20190423
  8. TRAZODONE [Suspect]
     Active Substance: TRAZODONE HYDROCHLORIDE
     Dosage: UNK
     Route: 065
     Dates: start: 20190424, end: 20190426
  9. ZOPICLONE [Suspect]
     Active Substance: ZOPICLONE
     Indication: MAJOR DEPRESSION
     Dosage: 7.5 MG, UNKNOWN
     Route: 065
     Dates: start: 20190318, end: 20190331
  10. SERTRALINE [Suspect]
     Active Substance: SERTRALINE HYDROCHLORIDE
     Dosage: 125 MG, UNKNOWN
     Route: 065
     Dates: start: 20190402
  11. TRAZODONE [Suspect]
     Active Substance: TRAZODONE HYDROCHLORIDE
     Dosage: 100 MG, UNKNOWN
     Route: 065
     Dates: start: 20190402, end: 20190414
  12. PROMETHAZINE [Suspect]
     Active Substance: PROMETHAZINE HYDROCHLORIDE
     Dosage: 150 MG, UNKNOWN
     Route: 065
     Dates: start: 20190423, end: 20190426
  13. PROMETHAZINE [Suspect]
     Active Substance: PROMETHAZINE HYDROCHLORIDE
     Dosage: 50 MG, UNKNOWN
     Route: 065
     Dates: start: 20190415, end: 20190422
  14. ZOPICLONE [Suspect]
     Active Substance: ZOPICLONE
     Dosage: 3.75 MG, UNKNOWN
     Route: 065
     Dates: start: 20190401, end: 20190426
  15. PROMETHAZINE [Suspect]
     Active Substance: PROMETHAZINE HYDROCHLORIDE
     Indication: MAJOR DEPRESSION
     Dosage: 25 MG, UNKNOWN
     Route: 065
     Dates: start: 20190403, end: 20190414
  16. BISOPROLOL [Concomitant]
     Active Substance: BISOPROLOL
     Indication: PRODUCT USED FOR UNKNOWN INDICATION
     Dosage: 2.5 MG, UNKNOWN
     Route: 065
  17. PANTOPRAZOLE [Concomitant]
     Active Substance: PANTOPRAZOLE
     Indication: PRODUCT USED FOR UNKNOWN INDICATION
     Dosage: UNK (20)
     Route: 065

REACTIONS (3)
  - Obsessive thoughts [Recovered/Resolved]
  - Akathisia [Recovered/Resolved]
  - Nonspecific reaction [Recovered/Resolved]

NARRATIVE: CASE EVENT DATE: 20190418
